FAERS Safety Report 7930304-7 (Version None)
Quarter: 2011Q4

REPORT INFORMATION
  Report Type: 
  Country: None (occurrence: None)
  Receive Date: 20111108
  Receipt Date: 20101007
  Transmission Date: 20120403
  Serious: Yes (Other)
  Sender: FDA-Public Use
  Company Number: PHHY2010US67815

PATIENT
  Age: 77 Year
  Sex: Male

DRUGS (10)
  1. DARVOCET [Concomitant]
  2. ZOMETA [Suspect]
     Indication: METASTASES TO BONE
     Dosage: 4 MG, INTRAVENOUS
     Route: 042
     Dates: start: 20100915, end: 20100915
  3. ZOMETA [Suspect]
     Indication: HYPERCALCAEMIA
     Dosage: 4 MG, INTRAVENOUS
     Route: 042
     Dates: start: 20100915, end: 20100915
  4. VALIUM [Concomitant]
  5. BENICAR [Concomitant]
  6. LASIX [Concomitant]
  7. POTASSIUM CHLORIDE [Concomitant]
  8. ASPIRIN [Concomitant]
  9. CARDIZEM [Concomitant]
  10. SYNTHROID [Concomitant]

REACTIONS (1)
  - HYPOCALCAEMIA [None]
